FAERS Safety Report 8837828 (Version 3)
Quarter: 2015Q2

REPORT INFORMATION
  Report Type: Report from Study
  Country: US (occurrence: US)
  Receive Date: 20121012
  Receipt Date: 20150417
  Transmission Date: 20150821
  Serious: Yes (Death)
  Sender: FDA-Public Use
  Company Number: US-ROCHE-1129016

PATIENT
  Sex: Male

DRUGS (12)
  1. NUTROPIN AQ [Suspect]
     Active Substance: SOMATROPIN
     Indication: GROWTH RETARDATION
  2. SODIUM CHLORIDE. [Concomitant]
     Active Substance: SODIUM CHLORIDE
  3. NUTROPIN AQ [Suspect]
     Active Substance: SOMATROPIN
     Indication: FAILURE TO THRIVE
     Route: 058
  4. TOBRAMYCIN. [Concomitant]
     Active Substance: TOBRAMYCIN
  5. ALBUTEROL. [Concomitant]
     Active Substance: ALBUTEROL
  6. PANCREASE MT20 [Concomitant]
  7. NUTROPIN AQ [Suspect]
     Active Substance: SOMATROPIN
     Indication: CYSTIC FIBROSIS
  8. CALCIUM CARBONATE. [Concomitant]
     Active Substance: CALCIUM CARBONATE
  9. AZITHROMYCIN [Concomitant]
     Active Substance: AZITHROMYCIN ANHYDROUS
  10. VITAMIN K [Concomitant]
     Active Substance: PHYTONADIONE
  11. NUTROPIN AQ [Suspect]
     Active Substance: SOMATROPIN
     Indication: BODY HEIGHT BELOW NORMAL
     Route: 058
     Dates: start: 200709
  12. FERROUS SULFATE [Concomitant]
     Active Substance: FERROUS SULFATE\FERROUS SULFATE, DRIED

REACTIONS (2)
  - Respiratory failure [Fatal]
  - Off label use [Unknown]
